FAERS Safety Report 6455257-2 (Version None)
Quarter: 2009Q4

REPORT INFORMATION
  Report Type: 
  Country: None (occurrence: None)
  Receive Date: 20091119
  Receipt Date: 20091105
  Transmission Date: 20100525
  Serious: Yes (Other)
  Sender: FDA-Public Use
  Company Number: 2009SP003020

PATIENT
  Age: 70 Year
  Sex: Female

DRUGS (1)
  1. ALVESCO [Suspect]
     Indication: ASTHMA
     Dosage: 320 UG;QD;INHALATION
     Route: 055
     Dates: start: 20091028, end: 20091031

REACTIONS (3)
  - COUGH [None]
  - DYSPNOEA [None]
  - HYPERTENSION [None]
